FAERS Safety Report 4730857-6 (Version None)
Quarter: 2005Q3

REPORT INFORMATION
  Report Type: 
  Country: None (occurrence: None)
  Receive Date: 20050719
  Receipt Date: 20040729
  Transmission Date: 20060218
  Serious: Yes (Hospitalization)
  Sender: FDA-Public Use
  Company Number: 195915

PATIENT
  Age: 60 Year
  Sex: Male

DRUGS (5)
  1. AVONEX [Suspect]
     Dosage: 30 UG;QW;IM
     Route: 030
     Dates: start: 20030101, end: 20030101
  2. AVONEX [Suspect]
     Dosage: 30 UG;QW;IM
     Route: 030
     Dates: start: 20030101, end: 20040101
  3. ZANAFLEX [Concomitant]
  4. DITROPAN [Concomitant]
  5. HIPREX [Concomitant]

REACTIONS (5)
  - INFLUENZA LIKE ILLNESS [None]
  - MULTIPLE SCLEROSIS [None]
  - PYREXIA [None]
  - URINARY TRACT INFECTION [None]
  - WEIGHT DECREASED [None]
